FAERS Safety Report 13718323 (Version 1)
Quarter: 2017Q3

REPORT INFORMATION
  Report Type: Spontaneous
  Country: FR (occurrence: FR)
  Receive Date: 20170705
  Receipt Date: 20170705
  Transmission Date: 20171127
  Serious: Yes (Hospitalization)
  Sender: FDA-Public Use
  Company Number: FR-PFIZER INC-2017282397

PATIENT
  Age: 78 Year
  Sex: Female

DRUGS (17)
  1. ALDACTONE [Concomitant]
     Active Substance: SPIRONOLACTONE
  2. PARIET [Concomitant]
     Active Substance: RABEPRAZOLE SODIUM
  3. JANUVIA [Concomitant]
     Active Substance: SITAGLIPTIN PHOSPHATE
  4. VERSATIS [Concomitant]
     Active Substance: LIDOCAINE
  5. CRESTOR [Concomitant]
     Active Substance: ROSUVASTATIN CALCIUM
  6. HAVLANE [Suspect]
     Active Substance: LOPRAZOLAM
     Dosage: 1 MG, 1X/DAY
     Route: 048
  7. LEXOMIL [Suspect]
     Active Substance: BROMAZEPAM
     Dosage: 6 MG, UNK
     Route: 048
     Dates: end: 20170529
  8. NEURONTIN [Suspect]
     Active Substance: GABAPENTIN
     Indication: PAIN
     Dosage: 600 MG, UNK
     Route: 048
  9. KARDEGIC [Concomitant]
     Active Substance: ASPIRIN LYSINE
  10. ACTISKENAN [Suspect]
     Active Substance: MORPHINE SULFATE
     Indication: PAIN
     Dosage: 10 MG, UNK
     Route: 048
     Dates: start: 20170523
  11. VOLTARENE [Concomitant]
     Active Substance: DICLOFENAC SODIUM
  12. ACTISKENAN [Suspect]
     Active Substance: MORPHINE SULFATE
     Dosage: 30 MG, UNK
     Route: 048
     Dates: end: 20170529
  13. TANGANIL [Concomitant]
     Active Substance: ACETYLLEUCINE
  14. LERCAN [Concomitant]
     Active Substance: LERCANIDIPINE
  15. ANAFRANIL [Suspect]
     Active Substance: CLOMIPRAMINE HYDROCHLORIDE
     Indication: DEPRESSION
     Dosage: 75 MG, UNK
     Route: 048
  16. DAFALGAN [Concomitant]
     Active Substance: ACETAMINOPHEN
  17. LASILIX [Concomitant]
     Active Substance: FUROSEMIDE

REACTIONS (4)
  - Overdose [Unknown]
  - Craniocerebral injury [Recovered/Resolved]
  - Malaise [Recovered/Resolved]
  - Fall [Recovered/Resolved]

NARRATIVE: CASE EVENT DATE: 20170528
